FAERS Safety Report 18148496 (Version 1)
Quarter: 2020Q3

REPORT INFORMATION
  Report Type: Spontaneous
  Country: US (occurrence: US)
  Receive Date: 20200813
  Receipt Date: 20200813
  Transmission Date: 20201103
  Serious: No
  Sender: FDA-Public Use
  Company Number: US-009507513-2008USA003078

PATIENT
  Age: 42 Year
  Sex: Male

DRUGS (4)
  1. BUDESONIDE. [Concomitant]
     Active Substance: BUDESONIDE
     Indication: EOSINOPHILIC OESOPHAGITIS
  2. PROVENTIL [Suspect]
     Active Substance: ALBUTEROL
     Indication: EOSINOPHILIC OESOPHAGITIS
  3. SINGULAIR [Suspect]
     Active Substance: MONTELUKAST SODIUM
     Indication: EOSINOPHILIC OESOPHAGITIS
     Route: 048
  4. OMALIZUMAB. [Concomitant]
     Active Substance: OMALIZUMAB
     Indication: URTICARIA CHRONIC

REACTIONS (1)
  - Product use in unapproved indication [Unknown]
